FAERS Safety Report 6204435-6 (Version None)
Quarter: 2009Q2

REPORT INFORMATION
  Report Type: 
  Country: None (occurrence: None)
  Receive Date: 20090527
  Receipt Date: 20090514
  Transmission Date: 20091009
  Serious: Yes (Life-Threatening, Other)
  Sender: FDA-Public Use
  Company Number: GB-PFIZER INC-2009204609

PATIENT
  Age: 35 Year

DRUGS (1)
  1. CHAMPIX [Suspect]
     Indication: SMOKING CESSATION THERAPY
     Dosage: UNK
     Route: 048
     Dates: start: 20081028, end: 20081111

REACTIONS (5)
  - AGGRESSION [None]
  - ANXIETY [None]
  - EUPHORIC MOOD [None]
  - HOMICIDAL IDEATION [None]
  - TYPE 2 DIABETES MELLITUS [None]
